FAERS Safety Report 5225908-9 (Version None)
Quarter: 2007Q1

REPORT INFORMATION
  Report Type: 
  Country: None (occurrence: None)
  Receive Date: 20070129
  Receipt Date: 20070117
  Transmission Date: 20070707
  Serious: Yes (Other)
  Sender: FDA-Public Use
  Company Number: GXKR2007IT00913

PATIENT
  Age: 77 Year
  Sex: Male

DRUGS (2)
  1. TRIAMCINOLONE DIACETATE [Suspect]
     Indication: MACULAR OEDEMA
     Dosage: 20 MG, ONCE, INTRAVITREAL IN
  2. DORZOLAMIDE W/TIMOLOL (DORZOLAMIDE, TIMOLOL) [Concomitant]

REACTIONS (2)
  - NO THERAPEUTIC RESPONSE [None]
  - OCULAR HYPERTENSION [None]
